FAERS Safety Report 10373582 (Version 1)
Quarter: 2014Q3

REPORT INFORMATION
  Report Type: Spontaneous
  Country: US (occurrence: US)
  Receive Date: 20140808
  Receipt Date: 20140808
  Transmission Date: 20150326
  Serious: Yes (Other)
  Sender: FDA-Public Use
  Company Number: US-TEVA-499885USA

PATIENT
  Age: 6 Year
  Sex: Male

DRUGS (10)
  1. CYTARABINE. [Concomitant]
     Active Substance: CYTARABINE
     Indication: ACUTE LYMPHOCYTIC LEUKAEMIA
     Route: 065
  2. MESNA. [Concomitant]
     Active Substance: MESNA
     Indication: DRUG TOXICITY PROPHYLAXIS
     Dosage: 4200 MG/M2 AS A 48-HOUR CONTINUOUS INFUSION
     Route: 041
  3. DEXAMETHASONE. [Suspect]
     Active Substance: DEXAMETHASONE
     Indication: ACUTE LYMPHOCYTIC LEUKAEMIA
     Dosage: 26 MG/M2/DAY FOR 7 DAYS STARTING ON DAY 8
     Route: 065
  4. PEGASPARGASE [Concomitant]
     Active Substance: PEGASPARGASE
     Indication: ACUTE LYMPHOCYTIC LEUKAEMIA
     Route: 065
  5. CYCLOPHOSPHAMIDE. [Suspect]
     Active Substance: CYCLOPHOSPHAMIDE
     Indication: ACUTE LYMPHOCYTIC LEUKAEMIA
     Dosage: 2100 MG/M2/DAY ON DAYS 1 AND 2
     Route: 065
  6. ONDANSETRON [Concomitant]
     Active Substance: ONDANSETRON
     Indication: PROPHYLAXIS OF NAUSEA AND VOMITING
     Route: 065
  7. VINCRISTINE [Suspect]
     Active Substance: VINCRISTINE
     Indication: ACUTE LYMPHOCYTIC LEUKAEMIA
     Dosage: 1.5 MG/M2 ON DAYS 8 AND 15
     Route: 065
  8. FILGRASTIM [Concomitant]
     Active Substance: FILGRASTIM
     Route: 065
  9. DAUNORUBICIN [Concomitant]
     Active Substance: DAUNORUBICIN
     Indication: ACUTE LYMPHOCYTIC LEUKAEMIA
     Route: 065
  10. VINCRISTINE [Suspect]
     Active Substance: VINCRISTINE
     Indication: ACUTE LYMPHOCYTIC LEUKAEMIA
     Route: 065

REACTIONS (1)
  - Transaminases increased [Recovered/Resolved]
